FAERS Safety Report 6062389-X (Version None)
Quarter: 2009Q1

REPORT INFORMATION
  Report Type: 
  Country: None (occurrence: None)
  Receive Date: 20090203
  Receipt Date: 20090122
  Transmission Date: 20090719
  Serious: Yes (Hospitalization)
  Sender: FDA-Public Use
  Company Number: US-ROCHE-610006

PATIENT
  Age: 49 Year
  Sex: Female

DRUGS (2)
  1. KLONOPIN [Suspect]
     Indication: SLEEP DISORDER THERAPY
     Dosage: DOSE REPORTED AS 7/8 OF 1MG (0.875 MG) PER DAY DOSE INCREASED WHEN IT STOPPED WORKING
     Route: 065
     Dates: start: 20000101
  2. PAXIL [Suspect]
     Indication: DRUG USE FOR UNKNOWN INDICATION
     Route: 065

REACTIONS (6)
  - DRUG DEPENDENCE [None]
  - DRUG INEFFECTIVE [None]
  - EXCESSIVE MASTURBATION [None]
  - HAEMORRHAGE [None]
  - LIBIDO INCREASED [None]
  - MANIA [None]
